FAERS Safety Report 14194381 (Version 10)
Quarter: 2018Q3

REPORT INFORMATION
  Report Type: Spontaneous
  Country: US (occurrence: US)
  Receive Date: 20171116
  Receipt Date: 20180829
  Transmission Date: 20181010
  Serious: Yes (Hospitalization)
  Sender: FDA-Public Use
  Company Number: US-PFIZER INC-2017491170

PATIENT
  Age: 65 Year
  Sex: Female
  Weight: 91 kg

DRUGS (10)
  1. LIPITOR [Concomitant]
     Active Substance: ATORVASTATIN CALCIUM
     Indication: BLOOD CHOLESTEROL INCREASED
     Dosage: 20 MG, DAILY
     Route: 048
     Dates: start: 201511
  2. IBRANCE [Suspect]
     Active Substance: PALBOCICLIB
     Indication: BREAST CANCER METASTATIC
     Dosage: 125 MG, CYCLIC (125MG CAPSULE 21 DAYS ON AND 7 DAYS OFF) (DAILY FOR 21 DAYS, THEN 7 DAYS OFF)
     Route: 048
     Dates: start: 201709
  3. TYLENOL [Concomitant]
     Active Substance: ACETAMINOPHEN
     Indication: PAIN
     Dosage: UNK UNK, AS NEEDED
  4. HCTZ [Concomitant]
     Active Substance: HYDROCHLOROTHIAZIDE
     Indication: BLOOD PRESSURE INCREASED
     Dosage: 25 MG, DAILY
     Route: 048
     Dates: start: 201511
  5. PROLIA [Suspect]
     Active Substance: DENOSUMAB
     Indication: BONE DISORDER
     Dosage: UNK (EVERY 6 MONTHS)
     Dates: start: 201710
  6. CRANBERRY. [Concomitant]
     Active Substance: CRANBERRY
     Dosage: UNK (PILL FORM)
  7. FEMARA [Concomitant]
     Active Substance: LETROZOLE
     Dosage: UNK
     Dates: end: 2017
  8. FASLODEX [Suspect]
     Active Substance: FULVESTRANT
     Dosage: 500 MG, MONTHLY (2 INJECTION; 250 MG IN EACH BUTT CHEEK ONCE A MONTH)
     Route: 030
  9. COUMADIN [Concomitant]
     Active Substance: WARFARIN SODIUM
     Indication: CHEMOTHERAPY
     Dosage: 1 MG, DAILY
     Route: 048
     Dates: start: 201711
  10. CALCIUM + D3 [Concomitant]
     Active Substance: CALCIUM\CHOLECALCIFEROL
     Dosage: 1000 MG, 2X/DAY

REACTIONS (9)
  - Peripheral swelling [Unknown]
  - Tumour marker increased [Unknown]
  - Throat tightness [Unknown]
  - Blood pressure increased [Recovering/Resolving]
  - Cough [Unknown]
  - Platelet count decreased [Unknown]
  - Oedema [Unknown]
  - Hot flush [Not Recovered/Not Resolved]
  - Insomnia [Unknown]

NARRATIVE: CASE EVENT DATE: 2017
